FAERS Safety Report 5060472-9 (Version None)
Quarter: 2006Q2

REPORT INFORMATION
  Report Type: 
  Country: None (occurrence: None)
  Receive Date: 20060630
  Receipt Date: 20050523
  Transmission Date: 20061013
  Serious: Yes (Life-Threatening)
  Sender: FDA-Public Use
  Company Number: VISP-PR-0505S-0284

PATIENT
  Age: 31 Year
  Sex: Female

DRUGS (1)
  1. VISIPAQUE [Suspect]
     Indication: HEART TRANSPLANT
     Dosage: 60 ML, SINGLE DOSE, I.A.
     Route: 013
     Dates: start: 20050101, end: 20050101

REACTIONS (1)
  - MYOCARDIAL INFARCTION [None]
